FAERS Safety Report 17585569 (Version 1)
Quarter: 2020Q1

REPORT INFORMATION
  Report Type: Report from Study
  Country: FR (occurrence: FR)
  Receive Date: 20200326
  Receipt Date: 20200326
  Transmission Date: 20200409
  Serious: Yes (Death, Hospitalization)
  Sender: FDA-Public Use
  Company Number: FR-ACTELION-A-CH2018-180691

PATIENT
  Age: 61 Year
  Sex: Male
  Weight: 61 kg

DRUGS (15)
  1. OXYGEN. [Concomitant]
     Active Substance: OXYGEN
  2. IMUREL [Concomitant]
     Active Substance: AZATHIOPRINE SODIUM
     Indication: CROHN^S DISEASE
     Dosage: 50 MG, BID
     Route: 048
  3. UPTRAVI [Suspect]
     Active Substance: SELEXIPAG
     Dosage: 1200 MCG, BID
     Route: 048
     Dates: start: 20190101
  4. TADALAFIL. [Concomitant]
     Active Substance: TADALAFIL
     Indication: PULMONARY ARTERIAL HYPERTENSION
     Dosage: 20 MG, BID
     Route: 048
     Dates: start: 201807
  5. UPTRAVI [Suspect]
     Active Substance: SELEXIPAG
     Dosage: 400 MCG, BID
     Route: 048
     Dates: start: 20181105
  6. UPTRAVI [Suspect]
     Active Substance: SELEXIPAG
     Dosage: 1000 MCG, BID
     Route: 048
     Dates: start: 20181217
  7. BOSENTAN. [Concomitant]
     Active Substance: BOSENTAN
     Indication: PULMONARY ARTERIAL HYPERTENSION
     Dosage: 125 MG, BID
     Route: 048
     Dates: start: 201805
  8. UPTRAVI [Suspect]
     Active Substance: SELEXIPAG
     Dosage: 800 MCG, BID
     Route: 048
     Dates: start: 20181203
  9. DIFFU-K [Concomitant]
     Active Substance: POTASSIUM CHLORIDE
     Dosage: 600 MG, TID
     Route: 048
  10. UPTRAVI [Suspect]
     Active Substance: SELEXIPAG
     Indication: PULMONARY ARTERIAL HYPERTENSION
     Dosage: 200 MCG, BID
     Route: 048
     Dates: start: 20181015
  11. UPTRAVI [Suspect]
     Active Substance: SELEXIPAG
     Dosage: 600 MCG, BID
     Route: 048
     Dates: start: 20181119
  12. UPTRAVI [Suspect]
     Active Substance: SELEXIPAG
     Dosage: 1400 MCG, BID
     Route: 048
     Dates: start: 20190114
  13. UPTRAVI [Suspect]
     Active Substance: SELEXIPAG
     Dosage: 1600 MCG, BID
     Route: 048
     Dates: start: 20190128, end: 20200227
  14. FUROSEMIDE. [Concomitant]
     Active Substance: FUROSEMIDE
     Dosage: 100 MG, QD
     Route: 048
  15. ESOMEPRAZOLE. [Concomitant]
     Active Substance: ESOMEPRAZOLE MAGNESIUM
     Dosage: 20 MG, QD
     Route: 048

REACTIONS (24)
  - Dyspnoea exertional [Unknown]
  - Pulmonary arterial hypertension [Not Recovered/Not Resolved]
  - Respiratory failure [Fatal]
  - Condition aggravated [Unknown]
  - Bronchitis [Recovered/Resolved]
  - Respiratory distress [Unknown]
  - Concomitant disease aggravated [Unknown]
  - Abdominal pain [Recovered/Resolved]
  - Decreased appetite [Not Recovered/Not Resolved]
  - Feeling cold [Not Recovered/Not Resolved]
  - Faeces soft [Not Recovered/Not Resolved]
  - Head discomfort [Recovered/Resolved]
  - Weight decreased [Not Recovered/Not Resolved]
  - Fatigue [Not Recovered/Not Resolved]
  - Cardiac arrest [Fatal]
  - Nasal congestion [Not Recovered/Not Resolved]
  - Chills [Not Recovered/Not Resolved]
  - Headache [Not Recovered/Not Resolved]
  - Hypoxia [Unknown]
  - Gastrointestinal sounds abnormal [Recovering/Resolving]
  - Diarrhoea [Not Recovered/Not Resolved]
  - Dyspnoea [Not Recovered/Not Resolved]
  - Apathy [Not Recovered/Not Resolved]
  - Sleep disorder [Not Recovered/Not Resolved]

NARRATIVE: CASE EVENT DATE: 20181015
